FAERS Safety Report 19068785 (Version 1)
Quarter: 2021Q1

REPORT INFORMATION
  Report Type: Spontaneous
  Country: FR (occurrence: FR)
  Receive Date: 20210329
  Receipt Date: 20210329
  Transmission Date: 20210420
  Serious: Yes (Hospitalization)
  Sender: FDA-Public Use
  Company Number: NVSC2021FR065872

PATIENT
  Age: 47 Year
  Sex: Female
  Weight: 54 kg

DRUGS (4)
  1. MIANSERIN HYDROCHLORIDE [Suspect]
     Active Substance: MIANSERIN HYDROCHLORIDE
     Indication: INTENTIONAL OVERDOSE
     Dosage: UNK (NP)
     Route: 048
     Dates: start: 20210207, end: 20210207
  2. LOXAPAC [Suspect]
     Active Substance: LOXAPINE
     Indication: INTENTIONAL OVERDOSE
     Dosage: UNK (NP)
     Route: 042
     Dates: start: 20210207, end: 20210207
  3. PARACETAMOL [Suspect]
     Active Substance: ACETAMINOPHEN
     Indication: INTENTIONAL OVERDOSE
     Dosage: UNK (NP)
     Route: 048
     Dates: start: 20210207
  4. SERESTA [Suspect]
     Active Substance: OXAZEPAM
     Indication: INTENTIONAL OVERDOSE
     Dosage: UNK (NP)
     Route: 048
     Dates: start: 20210207, end: 20210207

REACTIONS (4)
  - Poisoning deliberate [Recovered/Resolved]
  - Thrombocytopenia [Not Recovered/Not Resolved]
  - Hepatocellular injury [Not Recovered/Not Resolved]
  - Coma [Recovered/Resolved]

NARRATIVE: CASE EVENT DATE: 20210207
